FAERS Safety Report 5013944-7 (Version None)
Quarter: 2006Q2

REPORT INFORMATION
  Report Type: 
  Country: None (occurrence: None)
  Receive Date: 20060530
  Receipt Date: 20060512
  Transmission Date: 20061013
  Serious: Yes (Life-Threatening, Hospitalization, Other)
  Sender: FDA-Public Use
  Company Number: GR-ABBOTT-06P-066-0333126-00

PATIENT
  Sex: Female
  Weight: 72 kg

DRUGS (6)
  1. HUMIRA [Suspect]
     Indication: RHEUMATOID ARTHRITIS
     Route: 058
     Dates: start: 20041116
  2. HYDROXYCHLOROQUINE PHOSPHATE [Concomitant]
     Indication: RHEUMATOID ARTHRITIS
     Dates: start: 19980201
  3. BETAXOLOL [Concomitant]
     Indication: HYPERTENSION
     Dates: start: 20021101
  4. TELMISARTAN [Concomitant]
     Indication: HYPERTENSION
     Dates: start: 20021101
  5. DECAL [Concomitant]
     Indication: OSTEOPOROSIS PROPHYLAXIS
     Dates: start: 20040601
  6. COMMERCIAL HUMIRA [Concomitant]
     Indication: RHEUMATOID ARTHRITIS
     Route: 058
     Dates: start: 20031218

REACTIONS (3)
  - BRAIN NEOPLASM [None]
  - GLIOBLASTOMA [None]
  - HYPOAESTHESIA [None]
